FAERS Safety Report 9181804 (Version 3)
Quarter: 2013Q2

REPORT INFORMATION
  Report Type: Spontaneous
  Country: FR (occurrence: FR)
  Receive Date: 20130322
  Receipt Date: 20130401
  Transmission Date: 20140414
  Serious: Yes (Death)
  Sender: FDA-Public Use
  Company Number: PHHY2013FR027979

PATIENT
  Age: 42 Year
  Sex: Female
  Weight: 55 kg

DRUGS (1)
  1. TASIGNA [Suspect]
     Indication: CHRONIC MYELOID LEUKAEMIA
     Dosage: 400 MG, BID
     Route: 048
     Dates: start: 20100914

REACTIONS (4)
  - Cardiac arrest [Fatal]
  - Palpitations [Recovered/Resolved]
  - Malaise [Unknown]
  - Labelled drug-food interaction medication error [Unknown]
